FAERS Safety Report 8093025-9 (Version None)
Quarter: 2012Q1

REPORT INFORMATION
  Report Type: 
  Country: None (occurrence: None)
  Receive Date: 20120128
  Receipt Date: 20110901
  Transmission Date: 20120608
  Serious: No
  Sender: FDA-Public Use
  Company Number: US-ABBOTT-10P-163-0677789-00

PATIENT
  Age: 35 Year
  Sex: Female

DRUGS (23)
  1. WELLBUTRIN [Concomitant]
     Indication: DEPRESSION
  2. HYDROCODONE BITARTRATE [Concomitant]
     Indication: PAIN
     Dosage: 7.5
  3. ENTOCORT EC [Concomitant]
     Indication: CROHN'S DISEASE
  4. VITAMIN B1 TAB [Concomitant]
     Indication: VITAMIN SUPPLEMENTATION
  5. JUNEL 1.5/30 [Concomitant]
     Indication: CONTRACEPTION
  6. CYMBALTA [Concomitant]
     Indication: FIBROMYALGIA
  7. PENTASA [Concomitant]
     Indication: DYSPEPSIA
  8. CYMBALTA [Concomitant]
     Indication: PAIN
  9. MORPHINE SULFATE [Concomitant]
     Indication: BREAKTHROUGH PAIN
  10. VITAMIN D [Concomitant]
     Indication: VITAMIN SUPPLEMENTATION
  11. MORPHINE SULFATE [Concomitant]
     Indication: FIBROMYALGIA
  12. PHENERGAN [Concomitant]
     Indication: NAUSEA
  13. XANAX [Concomitant]
     Indication: INSOMNIA
  14. VITAMIN B COMPLEX CAP [Concomitant]
     Indication: PRODUCT USED FOR UNKNOWN INDICATION
  15. HUMIRA [Suspect]
     Indication: CROHN'S DISEASE
     Dates: start: 20101001
  16. WELLBUTRIN [Concomitant]
     Indication: PAIN MANAGEMENT
  17. XANAX [Concomitant]
     Indication: ANXIETY
  18. PROBIOTIC [Concomitant]
     Indication: SUPPLEMENTATION THERAPY
  19. CYMBALTA [Concomitant]
     Indication: DEPRESSION
  20. MULTI-VITAMIN [Concomitant]
     Indication: VITAMIN SUPPLEMENTATION
  21. CALCIUM [Concomitant]
     Indication: PRODUCT USED FOR UNKNOWN INDICATION
  22. MORPHINE SULFATE [Concomitant]
     Indication: CROHN'S DISEASE
  23. ASACOL [Concomitant]
     Indication: CROHN'S DISEASE
     Dosage: 3 TABS BID

REACTIONS (15)
  - DIARRHOEA [None]
  - DRUG INEFFECTIVE [None]
  - INJECTION SITE PAIN [None]
  - INJECTION SITE ERYTHEMA [None]
  - AMENORRHOEA [None]
  - INJECTION SITE SWELLING [None]
  - INJECTION SITE SCAR [None]
  - INJECTION SITE REACTION [None]
  - INJECTION SITE MACULE [None]
  - INJECTION SITE NODULE [None]
  - INJECTION SITE URTICARIA [None]
  - PYREXIA [None]
  - INJECTION SITE PRURITUS [None]
  - ARTHRALGIA [None]
  - BEDRIDDEN [None]
